FAERS Safety Report 4492057-7 (Version None)
Quarter: 2004Q4

REPORT INFORMATION
  Report Type: 
  Country: None (occurrence: None)
  Receive Date: 20041101
  Receipt Date: 20041021
  Transmission Date: 20050328
  Serious: Yes (Hospitalization, Other)
  Sender: FDA-Public Use
  Company Number: HQWYE877218OCT04

PATIENT
  Age: 2 Year
  Sex: Male

DRUGS (5)
  1. CHILDREN'S ADVIL [Suspect]
     Indication: PYREXIA
     Dosage: ORAL
     Route: 048
     Dates: start: 20040816, end: 20040818
  2. CHILDREN'S ADVIL [Suspect]
     Indication: VARICELLA
     Dosage: ORAL
     Route: 048
     Dates: start: 20040816, end: 20040818
  3. ASPIRIN [Suspect]
     Dosage: ORAL
     Route: 048
  4. TALC [Suspect]
     Dosage: ORAL
     Route: 048
  5. ASPEGIC 1000 [Concomitant]

REACTIONS (11)
  - BIOPSY SKIN ABNORMAL [None]
  - BULLOUS IMPETIGO [None]
  - C-REACTIVE PROTEIN INCREASED [None]
  - CONDITION AGGRAVATED [None]
  - DIARRHOEA [None]
  - NEUTROPHIL COUNT INCREASED [None]
  - PAIN [None]
  - PERIPHERAL COLDNESS [None]
  - SKIN DISCOLOURATION [None]
  - STAPHYLOCOCCAL INFECTION [None]
  - VARICELLA [None]
